FAERS Safety Report 7104477-2 (Version None)
Quarter: 2010Q4

REPORT INFORMATION
  Report Type: 
  Country: None (occurrence: None)
  Receive Date: 20101116
  Receipt Date: 20101008
  Transmission Date: 20110411
  Serious: No
  Sender: FDA-Public Use
  Company Number: US-BIOGENIDEC-2010BI029015

PATIENT
  Age: 41 Year
  Sex: Female

DRUGS (2)
  1. TYSABRI [Suspect]
     Indication: MULTIPLE SCLEROSIS
     Route: 042
     Dates: start: 20100513
  2. VICODIN [Concomitant]
     Indication: PAIN
     Dates: start: 20100701

REACTIONS (17)
  - BALANCE DISORDER [None]
  - COGNITIVE DISORDER [None]
  - CONFUSIONAL STATE [None]
  - DIARRHOEA [None]
  - DYSGRAPHIA [None]
  - FATIGUE [None]
  - GASTROINTESTINAL VIRAL INFECTION [None]
  - INSOMNIA [None]
  - MEMORY IMPAIRMENT [None]
  - MUSCULAR WEAKNESS [None]
  - NAUSEA [None]
  - PAIN [None]
  - PHOTOPHOBIA [None]
  - POST LUMBAR PUNCTURE SYNDROME [None]
  - VEIN DISORDER [None]
  - VISUAL IMPAIRMENT [None]
  - VOMITING [None]
